FAERS Safety Report 6215532-3 (Version None)
Quarter: 2009Q2

REPORT INFORMATION
  Report Type: 
  Country: None (occurrence: None)
  Receive Date: 20090605
  Receipt Date: 20090526
  Transmission Date: 20091009
  Serious: Yes (Disabling, Other)
  Sender: FDA-Public Use
  Company Number: GB-ABBOTT-09P-167-0576308-00

PATIENT
  Age: 42 Year
  Sex: Female

DRUGS (6)
  1. KALETRA [Suspect]
     Indication: HIV INFECTION
     Dates: start: 20061121
  2. REYATAZ [Suspect]
     Indication: ROUTINE HEALTH MAINTENANCE
     Dates: start: 20061121
  3. REYATAZ [Suspect]
     Indication: HIV INFECTION
  4. DIDANOSINE [Suspect]
     Indication: HIV INFECTION
     Dates: start: 20061121
  5. ABACAVIR [Suspect]
     Indication: HIV INFECTION
     Dates: start: 20061121
  6. METHYLDOPA [Concomitant]
     Indication: HYPERTENSION
     Dates: start: 20070801, end: 20071212

REACTIONS (4)
  - FOCAL SEGMENTAL GLOMERULOSCLEROSIS [None]
  - HAEMODYNAMIC INSTABILITY [None]
  - LIVE BIRTH [None]
  - PREGNANCY [None]
